FAERS Safety Report 6110784-2 (Version None)
Quarter: 2009Q1

REPORT INFORMATION
  Report Type: 
  Country: None (occurrence: None)
  Receive Date: 20090311
  Receipt Date: 20090305
  Transmission Date: 20090719
  Serious: Yes (Other)
  Sender: FDA-Public Use
  Company Number: BR-BAYER-200815372LA

PATIENT
  Age: 35 Year
  Sex: Female

DRUGS (2)
  1. YAZ [Suspect]
     Indication: ORAL CONTRACEPTION
     Route: 048
     Dates: start: 20080101, end: 20080625
  2. DORFLEX [Concomitant]
     Indication: HEADACHE
     Route: 048

REACTIONS (3)
  - ABORTION SPONTANEOUS [None]
  - GENITAL HAEMORRHAGE [None]
  - PREGNANCY ON ORAL CONTRACEPTIVE [None]
